FAERS Safety Report 7308727-9 (Version None)
Quarter: 2011Q1

REPORT INFORMATION
  Report Type: 
  Country: None (occurrence: None)
  Receive Date: 20110223
  Receipt Date: 20110211
  Transmission Date: 20110831
  Serious: Yes (Other)
  Sender: FDA-Public Use
  Company Number: PHHY2011CA11791

PATIENT
  Sex: Male

DRUGS (5)
  1. ADVAIR HFA [Concomitant]
  2. ATROVENT [Concomitant]
  3. ATACAND [Concomitant]
     Dosage: 16 MG, UNK
     Route: 048
  4. HYDROCHLOROTHIAZIDE [Concomitant]
     Dosage: 25 MG, UNK
     Route: 048
  5. ALISKIREN [Suspect]
     Indication: HYPERTENSION
     Dosage: 150 MG, DAILY
     Route: 048
     Dates: start: 20100820, end: 20101116

REACTIONS (1)
  - ASTHENIA [None]
